FAERS Safety Report 6352796-X (Version None)
Quarter: 2009Q3

REPORT INFORMATION
  Report Type: 
  Country: None (occurrence: None)
  Receive Date: 20090912
  Receipt Date: 20090622
  Transmission Date: 20100115
  Serious: No
  Sender: FDA-Public Use
  Company Number: US-ABBOTT-08P-163-0446825-00

PATIENT
  Sex: Male
  Weight: 68.1 kg

DRUGS (7)
  1. HUMIRA [Suspect]
     Indication: PSORIATIC ARTHROPATHY
     Dates: start: 20080101
  2. HUMIRA [Suspect]
     Indication: PSORIASIS
  3. PCN [Concomitant]
     Indication: RHEUMATIC FEVER
     Route: 048
  4. WARFARIN SODIUM [Concomitant]
     Indication: HEART VALVE REPLACEMENT
  5. WARFARIN SODIUM [Concomitant]
     Indication: MITRAL VALVE REPLACEMENT
  6. HEART BEAT MEDICINE [Concomitant]
     Indication: HEART RATE IRREGULAR
     Route: 048
  7. ERGOCALCIFEROL [Concomitant]
     Indication: VITAMIN SUPPLEMENTATION
     Route: 048

REACTIONS (3)
  - ARTHRALGIA [None]
  - INCORRECT DOSE ADMINISTERED [None]
  - WRONG TECHNIQUE IN DRUG USAGE PROCESS [None]
